FAERS Safety Report 7179615-6 (Version None)
Quarter: 2010Q4

REPORT INFORMATION
  Report Type: 
  Country: None (occurrence: None)
  Receive Date: 20101208
  Receipt Date: 20101129
  Transmission Date: 20110411
  Serious: Yes (Hospitalization, Other)
  Sender: FDA-Public Use
  Company Number: JPI-P-009575

PATIENT
  Age: 52 Year
  Sex: Female
  Weight: 141.9759 kg

DRUGS (6)
  1. XYREM [Suspect]
     Indication: NARCOLEPSY
     Dosage: (4.5 GM (2.25 GM, 2 IN 1 D), ORAL) (4.5 GM (2.25 GM, 2 IN 1 D), ORAL) (4.5 GM FIRST DOSE/3.75 GM SEC
     Route: 048
     Dates: start: 20031215, end: 20070101
  2. XYREM [Suspect]
     Indication: NARCOLEPSY
     Dosage: (4.5 GM (2.25 GM, 2 IN 1 D), ORAL) (4.5 GM (2.25 GM, 2 IN 1 D), ORAL) (4.5 GM FIRST DOSE/3.75 GM SEC
     Route: 048
     Dates: start: 20080101
  3. XYREM [Suspect]
     Indication: NARCOLEPSY
     Dosage: (4.5 GM (2.25 GM, 2 IN 1 D), ORAL) (4.5 GM (2.25 GM, 2 IN 1 D), ORAL) (4.5 GM FIRST DOSE/3.75 GM SEC
     Route: 048
     Dates: start: 20100715
  4. CELECOXIB [Concomitant]
  5. LORAZEPAM [Concomitant]
  6. METOPROLOL [Concomitant]

REACTIONS (13)
  - AMNESIA [None]
  - BENIGN NEOPLASM [None]
  - COLONIC POLYP [None]
  - CONFUSIONAL STATE [None]
  - FACE INJURY [None]
  - MIDDLE INSOMNIA [None]
  - OESOPHAGEAL DISORDER [None]
  - PERIPHERAL ARTERIAL OCCLUSIVE DISEASE [None]
  - ROAD TRAFFIC ACCIDENT [None]
  - SENSORY LOSS [None]
  - SOMNOLENCE [None]
  - UPPER LIMB FRACTURE [None]
  - WRIST FRACTURE [None]
